FAERS Safety Report 7508165-X (Version None)
Quarter: 2011Q2

REPORT INFORMATION
  Report Type: 
  Country: None (occurrence: None)
  Receive Date: 20110519
  Receipt Date: 20110512
  Transmission Date: 20111010
  Serious: Yes (Other)
  Sender: FDA-Public Use
  Company Number: 2011S1000139

PATIENT
  Sex: Female

DRUGS (8)
  1. UNSPECIFIED ASTHMA MEDICATIONS [Concomitant]
  2. BENAZEPRIL HYDROCHLORIDE [Concomitant]
  3. ADVIL LIQUI-GELS [Concomitant]
  4. TYLENOL-500 [Concomitant]
  5. THYROID TAB [Concomitant]
  6. DARVOCET-N 50 [Suspect]
     Indication: PROCEDURAL PAIN
     Dosage: PRN; PO
     Route: 048
     Dates: end: 20110102
  7. DARVOCET-N 50 [Suspect]
     Indication: BACK PAIN
     Dosage: PRN; PO
     Route: 048
     Dates: end: 20110102
  8. DILTIAZEM [Concomitant]

REACTIONS (5)
  - ANKLE OPERATION [None]
  - ATRIAL FIBRILLATION [None]
  - HYPOTHYROIDISM [None]
  - ASTHMA [None]
  - HYPERTENSION [None]
